FAERS Safety Report 5571573-0 (Version None)
Quarter: 2007Q4

REPORT INFORMATION
  Report Type: 
  Country: None (occurrence: None)
  Receive Date: 20071221
  Receipt Date: 20071217
  Transmission Date: 20080405
  Serious: Yes (Hospitalization, Other)
  Sender: FDA-Public Use
  Company Number: US-ELI_LILLY_AND_COMPANY-US200712003602

PATIENT
  Sex: Male
  Weight: 93.424 kg

DRUGS (6)
  1. BYETTA [Suspect]
     Dosage: 5 UG, 2/D
     Route: 058
     Dates: start: 20050101, end: 20070301
  2. BYETTA [Suspect]
     Dosage: 10 UG, 2/D
     Route: 058
     Dates: start: 20070301, end: 20071015
  3. LANTUS [Concomitant]
     Dosage: 10 U, DAILY (1/D)
     Route: 058
     Dates: start: 20071001
  4. GLYBURIDE [Concomitant]
     Dosage: 4 MG, DAILY (1/D)
     Route: 048
  5. METFORMIN /00082702/ [Concomitant]
     Dates: end: 20071001
  6. ASPIRIN [Concomitant]
     Indication: PROPHYLAXIS
     Dosage: 81 MG, DAILY (1/D)
     Route: 048

REACTIONS (11)
  - ABDOMINAL PAIN [None]
  - BLOOD GLUCOSE INCREASED [None]
  - BLOOD PRESSURE INCREASED [None]
  - CHOLECYSTITIS [None]
  - CHOLELITHIASIS [None]
  - DIARRHOEA [None]
  - GLYCOSYLATED HAEMOGLOBIN INCREASED [None]
  - PANCREATITIS ACUTE [None]
  - PROCEDURAL PAIN [None]
  - VOMITING [None]
  - WEIGHT DECREASED [None]
